FAERS Safety Report 24043604 (Version 3)
Quarter: 2025Q3

REPORT INFORMATION
  Report Type: Report from Study
  Country: CA (occurrence: CA)
  Receive Date: 20240703
  Receipt Date: 20250729
  Transmission Date: 20251021
  Serious: Yes (Death, Other)
  Sender: Alvotech
  Company Number: CA-JAMP PHARMA CORPORATION-2024-JAM-CA-01287

PATIENT
  Age: 53 Year
  Sex: Female

DRUGS (3)
  1. SIMLANDI [Suspect]
     Active Substance: ADALIMUMAB-RYVK
     Indication: Rheumatoid arthritis
     Dosage: 80 MG, EVERY 2 WEEKS
     Route: 058
     Dates: start: 20231212
  2. SIMLANDI [Suspect]
     Active Substance: ADALIMUMAB-RYVK
     Indication: Rheumatoid arthritis
     Dosage: 80 MILLIGRAM, WEEKLY
     Route: 058
  3. SIMLANDI [Suspect]
     Active Substance: ADALIMUMAB-RYVK
     Indication: Rheumatoid arthritis
     Dosage: 40 MILLIGRAM, EVERY 2 WEEKS
     Route: 058
     Dates: start: 20231117

REACTIONS (6)
  - Death [Fatal]
  - Rheumatoid arthritis [Not Recovered/Not Resolved]
  - Sunburn [Unknown]
  - Urinary tract infection [Recovered/Resolved]
  - Alopecia [Unknown]
  - Off label use [Unknown]
